FAERS Safety Report 21003931 (Version 5)
Quarter: 2022Q4

REPORT INFORMATION
  Report Type: Spontaneous
  Country: US (occurrence: US)
  Receive Date: 20220624
  Receipt Date: 20221010
  Transmission Date: 20230112
  Serious: Yes (Other)
  Sender: FDA-Public Use
  Company Number: US-BAYER-2022A088013

PATIENT
  Age: 24 Year
  Sex: Female

DRUGS (9)
  1. KYLEENA [Suspect]
     Active Substance: LEVONORGESTREL
     Indication: Intra-uterine contraceptive device insertion
     Dosage: 17.5?G/DAY
     Route: 015
     Dates: start: 20190719, end: 20220401
  2. CRYO [Concomitant]
  3. FLAGYL [Concomitant]
     Active Substance: METRONIDAZOLE\METRONIDAZOLE HYDROCHLORIDE
  4. LEVAQUIN [Concomitant]
     Active Substance: LEVOFLOXACIN
  5. ETHINYL ESTRADIOL\NORETHINDRONE ACETATE [Concomitant]
     Active Substance: ETHINYL ESTRADIOL\NORETHINDRONE ACETATE
  6. PENICILLIN V POTASSIUM [Concomitant]
     Active Substance: PENICILLIN V POTASSIUM
     Dosage: 250 MG
     Dates: start: 20210330
  7. DIFLUCAN [Concomitant]
     Active Substance: FLUCONAZOLE
     Dosage: 150 MG
     Route: 048
     Dates: start: 20210714
  8. KEFLEX PEDIATRICO [Concomitant]
     Dosage: 500 MG
     Route: 048
     Dates: start: 20210421
  9. LEVOFLOXACIN [Concomitant]
     Active Substance: LEVOFLOXACIN
     Dosage: 500 MG
     Dates: start: 20210513, end: 2022

REACTIONS (4)
  - Actinomycosis [Not Recovered/Not Resolved]
  - Genital haemorrhage [Recovering/Resolving]
  - Device dislocation [None]
  - Mood swings [None]

NARRATIVE: CASE EVENT DATE: 20210401
